FAERS Safety Report 23864440 (Version 2)
Quarter: 2024Q2

REPORT INFORMATION
  Report Type: Report from Study
  Country: US (occurrence: US)
  Receive Date: 20240516
  Receipt Date: 20240526
  Transmission Date: 20240716
  Serious: Yes (Hospitalization)
  Sender: FDA-Public Use
  Company Number: US-ZENPEP LLC-2024AIMT00765

PATIENT

DRUGS (2)
  1. ZENPEP [Suspect]
     Active Substance: PANCRELIPASE AMYLASE\PANCRELIPASE LIPASE\PANCRELIPASE PROTEASE
     Indication: Pancreatic disorder
     Dosage: 40 000 USP UNITS, 100CT CAPSULES ( 2TAB /MEAL EACH DAY AND 1TAB WITH A SNACK)
     Route: 048
     Dates: start: 20240312
  2. ZENPEP [Suspect]
     Active Substance: PANCRELIPASE AMYLASE\PANCRELIPASE LIPASE\PANCRELIPASE PROTEASE
     Dosage: 40 000 USP UNITS, 100CT CAPSULES( 2TAB /MEAL EACH DAY AND 1TAB WITH A SNACK), ONCE, LAST DOSE PRIOR
     Route: 048
     Dates: start: 20240312

REACTIONS (7)
  - Aortic valve stenosis [Unknown]
  - Mucous stools [Recovered/Resolved]
  - Intentional underdose [Unknown]
  - Abdominal pain upper [Not Recovered/Not Resolved]
  - Product use issue [Unknown]
  - Drug effect less than expected [Unknown]
  - Abdominal pain lower [Unknown]

NARRATIVE: CASE EVENT DATE: 20240313
